FAERS Safety Report 25162484 (Version 1)
Quarter: 2025Q2

REPORT INFORMATION
  Report Type: Spontaneous
  Country: US (occurrence: US)
  Receive Date: 20250404
  Receipt Date: 20250404
  Transmission Date: 20250716
  Serious: Yes (unspecified)
  Sender: QUVA PHARMA
  Company Number: US-QuVa Pharma-2174272

PATIENT
  Age: 28 Year
  Sex: Female
  Weight: 69 kg

DRUGS (2)
  1. OXYTOCIN\SODIUM CHLORIDE - HUMAN COMPOUNDED DRUG [Suspect]
     Active Substance: OXYTOCIN\SODIUM CHLORIDE
     Indication: Labour augmentation
     Dates: start: 20250226, end: 20250226
  2. OXYTOCIN\SODIUM CHLORIDE - HUMAN COMPOUNDED DRUG [Suspect]
     Active Substance: OXYTOCIN\SODIUM CHLORIDE
     Indication: Postpartum haemorrhage

REACTIONS (1)
  - Postpartum haemorrhage [Recovered/Resolved]

NARRATIVE: CASE EVENT DATE: 20250226
